FAERS Safety Report 15456097 (Version 1)
Quarter: 2018Q4

REPORT INFORMATION
  Report Type: Spontaneous
  Country: US (occurrence: US)
  Receive Date: 20181002
  Receipt Date: 20181002
  Transmission Date: 20190204
  Serious: No
  Sender: FDA-Public Use
  Company Number: US-BAYER-2018-174128

PATIENT
  Sex: Male

DRUGS (1)
  1. ALIQOPA [Suspect]
     Active Substance: COPANLISIB
     Indication: B-CELL LYMPHOMA RECURRENT
     Dosage: UNK
     Route: 042
     Dates: start: 20180906

REACTIONS (1)
  - Fatigue [None]
